FAERS Safety Report 15903799 (Version 2)
Quarter: 2019Q1

REPORT INFORMATION
  Report Type: Spontaneous
  Country: FR (occurrence: FR)
  Receive Date: 20190203
  Receipt Date: 20190213
  Transmission Date: 20190417
  Serious: Yes (Other)
  Sender: FDA-Public Use
  Company Number: FR-AUROBINDO-AUR-APL-2019-004593

PATIENT

DRUGS (1)
  1. LAMOTRIGINE ARROW CHEWABLE OR DISPERSIBLE TABLETS 200 MG [Suspect]
     Active Substance: LAMOTRIGINE
     Indication: PRODUCT USED FOR UNKNOWN INDICATION
     Dosage: 1.5 DOSAGE FORM IN TOTAL
     Route: 048
     Dates: start: 20180929, end: 20180929

REACTIONS (2)
  - Hypertransaminasaemia [Recovered/Resolved]
  - Accidental exposure to product by child [Recovered/Resolved]

NARRATIVE: CASE EVENT DATE: 20180929
